FAERS Safety Report 7278426-0 (Version None)
Quarter: 2011Q1

REPORT INFORMATION
  Report Type: 
  Country: None (occurrence: None)
  Receive Date: 20110207
  Receipt Date: 20110125
  Transmission Date: 20110831
  Serious: Yes (Other)
  Sender: FDA-Public Use
  Company Number: NL-ELI_LILLY_AND_COMPANY-NL201101007382

PATIENT
  Age: 35 Year
  Sex: Female

DRUGS (1)
  1. ZYPADHERA [Suspect]

REACTIONS (3)
  - GLAUCOMA [None]
  - EYELID OEDEMA [None]
  - OEDEMA PERIPHERAL [None]
